FAERS Safety Report 15186780 (Version 1)
Quarter: 2018Q3

REPORT INFORMATION
  Report Type: Report from Study
  Country: US (occurrence: US)
  Receive Date: 20180723
  Receipt Date: 20180723
  Transmission Date: 20181010
  Serious: No
  Sender: FDA-Public Use
  Company Number: US-EXELIXIS-CABO-18013156

PATIENT
  Sex: Female

DRUGS (2)
  1. COMETRIQ [Suspect]
     Active Substance: CABOZANTINIB S-MALATE
     Dosage: 120 MG, QD
     Route: 048
     Dates: start: 201710
  2. COMETRIQ [Suspect]
     Active Substance: CABOZANTINIB S-MALATE
     Indication: THYROID CANCER
     Dosage: 140 MG, QD
     Route: 048
     Dates: start: 201505, end: 201507

REACTIONS (5)
  - Nausea [Recovering/Resolving]
  - Diarrhoea [Recovering/Resolving]
  - Dysbacteriosis [Recovering/Resolving]
  - Vomiting [Recovering/Resolving]
  - Breast mass [Unknown]
